FAERS Safety Report 5335975-X (Version None)
Quarter: 2007Q2

REPORT INFORMATION
  Report Type: 
  Country: None (occurrence: None)
  Receive Date: 20070302
  Receipt Date: 20061108
  Transmission Date: 20071010
  Serious: Yes (Hospitalization)
  Sender: FDA-Public Use
  Company Number: 2458

PATIENT
  Age: 45 Year
  Sex: Male
  Weight: 83.9154 kg

DRUGS (5)
  1. TARGRETIN [Suspect]
     Indication: MYCOSIS FUNGOIDES
     Dosage: 375 MG DAILY PO
     Route: 048
     Dates: start: 20060808, end: 20061108
  2. ENTOCORT EC [Concomitant]
  3. CETIRIZINE HCI [Concomitant]
  4. EZETIMIBE [Concomitant]
  5. LEVOTHYROXINE SODIUM [Concomitant]

REACTIONS (3)
  - INFLUENZA LIKE ILLNESS [None]
  - INSOMNIA [None]
  - PSEUDOLYMPHOMA [None]
